FAERS Safety Report 6719913-0 (Version None)
Quarter: 2010Q2

REPORT INFORMATION
  Report Type: 
  Country: None (occurrence: None)
  Receive Date: 20100511
  Receipt Date: 20100428
  Transmission Date: 20101027
  Serious: Yes (Other)
  Sender: FDA-Public Use
  Company Number: AE-GENZYME-POMP-1000931

PATIENT
  Sex: Female
  Weight: 6.7 kg

DRUGS (1)
  1. MYOZYME [Suspect]
     Indication: GLYCOGEN STORAGE DISEASE TYPE II
     Dosage: UNK
     Route: 042
     Dates: start: 20091016

REACTIONS (3)
  - CYANOSIS [None]
  - HEART RATE DECREASED [None]
  - HYPOTONIA [None]
